FAERS Safety Report 19009042 (Version 1)
Quarter: 2021Q1

REPORT INFORMATION
  Report Type: Spontaneous
  Country: JP (occurrence: JE)
  Receive Date: 20210315
  Receipt Date: 20210315
  Transmission Date: 20210420
  Serious: Yes (Other)
  Sender: FDA-Public Use
  Company Number: JP-CELGENEUS-JPN-20210302021

PATIENT
  Age: 76 Year
  Sex: Female
  Weight: 39.6 kg

DRUGS (7)
  1. INSULIN [Concomitant]
     Active Substance: INSULIN NOS
     Indication: DIABETES MELLITUS
     Route: 065
     Dates: start: 201902
  2. GEMCITABINE. [Suspect]
     Active Substance: GEMCITABINE
     Indication: PANCREATIC CARCINOMA
     Dosage: THE DRUG DOSAGE WAS REDUCED TO 80% DUE TO THE ADVANCED AGE ()
     Route: 065
     Dates: start: 2019
  3. ABRAXANE [Suspect]
     Active Substance: PACLITAXEL
     Indication: PANCREATIC CARCINOMA
     Route: 041
     Dates: start: 2019
  4. PIOGLITAZONE. [Concomitant]
     Active Substance: PIOGLITAZONE
     Indication: DIABETES MELLITUS
     Route: 065
  5. METFORMIN [Concomitant]
     Active Substance: METFORMIN HYDROCHLORIDE
     Indication: DIABETES MELLITUS
     Route: 065
  6. METFORMIN HYDROCHLORIDE, ALOGLIPTIN [Concomitant]
     Indication: DIABETES MELLITUS
     Route: 065
  7. GLIMEPIRIDE. [Concomitant]
     Active Substance: GLIMEPIRIDE
     Indication: DIABETES MELLITUS
     Route: 065

REACTIONS (3)
  - Ophthalmic herpes zoster [Recovered/Resolved]
  - Neutropenia [Recovered/Resolved]
  - IIIrd nerve paralysis [Recovering/Resolving]

NARRATIVE: CASE EVENT DATE: 2019
